FAERS Safety Report 7050306-5 (Version None)
Quarter: 2010Q4

REPORT INFORMATION
  Report Type: 
  Country: None (occurrence: None)
  Receive Date: 20101018
  Receipt Date: 20101008
  Transmission Date: 20110411
  Serious: Yes (Other)
  Sender: FDA-Public Use
  Company Number: GXKR2010FR11434

PATIENT
  Sex: Female

DRUGS (4)
  1. DOCETAXEL (NGX) [Suspect]
     Indication: BREAST CANCER
     Dosage: 100 MG/M2 DURING 2 HOURS, 3 WEEKLY
     Route: 065
  2. PACLITAXEL (NGX) [Suspect]
     Indication: BREAST CANCER
     Dosage: WEEKLY, OVER 1 HOUR
     Route: 065
  3. BEVACIZUMAB [Suspect]
     Indication: BREAST CANCER
     Dosage: 15 MG/KG, 3 WEEKLY
  4. ANTHRACYCLINES [Suspect]
     Indication: BREAST CANCER
     Route: 065

REACTIONS (3)
  - EPISTAXIS [None]
  - MUCOUS MEMBRANE DISORDER [None]
  - NASAL SEPTUM PERFORATION [None]
